FAERS Safety Report 18551682 (Version 1)
Quarter: 2020Q4

REPORT INFORMATION
  Report Type: Spontaneous
  Country: US (occurrence: US)
  Receive Date: 20201126
  Receipt Date: 20201126
  Transmission Date: 20210114
  Serious: Yes (Hospitalization, Other)
  Sender: FDA-Public Use
  Company Number: US-PURDUE-USA-2020-0179770

PATIENT
  Age: 70 Year
  Sex: Female

DRUGS (10)
  1. NON-PMN HYDROMORPHONE HCL [Suspect]
     Active Substance: HYDROMORPHONE HYDROCHLORIDE
     Indication: AGITATION
     Dosage: UNK
     Route: 041
  2. CHLORDIAZEPOXIDE. [Suspect]
     Active Substance: CHLORDIAZEPOXIDE
     Indication: AGITATION
     Dosage: 30 MG, DAILY
     Route: 041
  3. KETAMINE [Concomitant]
     Active Substance: KETAMINE
     Indication: AGITATION
     Route: 041
  4. AMOXICILLIN CLAVULANIC ACID [Concomitant]
     Active Substance: AMOXICILLIN\CLAVULANIC ACID
  5. NON-PMN OXYCODONE [Suspect]
     Active Substance: OXYCODONE
     Indication: AGITATION
     Dosage: 60 MG, DAILY
     Route: 041
  6. PROPOFOL. [Suspect]
     Active Substance: PROPOFOL
     Indication: AGITATION
     Dosage: UNK
     Route: 041
  7. DEXMEDETOMIDINE. [Concomitant]
     Active Substance: DEXMEDETOMIDINE
     Indication: AGITATION
     Route: 041
  8. QUETIAPINE. [Concomitant]
     Active Substance: QUETIAPINE
     Indication: AGITATION
     Dosage: 175 MG, DAILY
  9. MIDAZOLAM. [Suspect]
     Active Substance: MIDAZOLAM
     Indication: AGITATION
     Dosage: UNK
     Route: 041
  10. MELATONIN [Concomitant]
     Active Substance: MELATONIN
     Indication: AGITATION
     Dosage: 5 MG, DAILY [NIGHTLY]

REACTIONS (1)
  - Delirium [Recovered/Resolved]
